FAERS Safety Report 5736908-4 (Version None)
Quarter: 2008Q2

REPORT INFORMATION
  Report Type: 
  Country: None (occurrence: None)
  Receive Date: 20080509
  Receipt Date: 20070709
  Transmission Date: 20081010
  Serious: Yes (Hospitalization)
  Sender: FDA-Public Use
  Company Number: 2007RR-08559

PATIENT
  Age: 51 Year
  Sex: Male

DRUGS (1)
  1. CEFADROXIL [Suspect]
     Indication: OSTEOMYELITIS
     Dosage: 500 MG, BID

REACTIONS (5)
  - DERMATITIS EXFOLIATIVE [None]
  - DRUG RASH WITH EOSINOPHILIA AND SYSTEMIC SYMPTOMS [None]
  - MYALGIA [None]
  - SKIN TEST POSITIVE [None]
  - WOUND [None]
